FAERS Safety Report 12928775 (Version 1)
Quarter: 2016Q4

REPORT INFORMATION
  Report Type: Spontaneous
  Country: RU (occurrence: RU)
  Receive Date: 20161110
  Receipt Date: 20161110
  Transmission Date: 20170207
  Serious: Yes (Life-Threatening)
  Sender: FDA-Public Use
  Company Number: RU-ASTRAZENECA-2016SF16403

PATIENT
  Age: 54 Year
  Sex: Male
  Weight: 85 kg

DRUGS (6)
  1. BISOPROLOL [Concomitant]
     Active Substance: BISOPROLOL
     Dosage: 5.0MG UNKNOWN
     Route: 065
  2. BRILINTA [Suspect]
     Active Substance: TICAGRELOR
     Indication: MYOCARDIAL INFARCTION
     Dosage: TWO TIMES A DAY
     Route: 048
     Dates: start: 20160920
  3. ASPIRIN. [Concomitant]
     Active Substance: ASPIRIN
     Dosage: 100.0MG UNKNOWN
     Route: 065
  4. OMEPRAZOLE. [Concomitant]
     Active Substance: OMEPRAZOLE
     Route: 065
  5. ATORVASTATIN [Concomitant]
     Active Substance: ATORVASTATIN
     Dosage: 20.0MG UNKNOWN
     Route: 065
  6. ENALAPRIL [Concomitant]
     Active Substance: ENALAPRIL
     Route: 065

REACTIONS (1)
  - Vascular stent thrombosis [Unknown]

NARRATIVE: CASE EVENT DATE: 20161031
